FAERS Safety Report 4287814-6 (Version None)
Quarter: 2004Q1

REPORT INFORMATION
  Report Type: 
  Country: None (occurrence: None)
  Receive Date: 20040209
  Receipt Date: 20031002
  Transmission Date: 20041129
  Serious: No
  Sender: FDA-Public Use
  Company Number: US-GLAXOSMITHKLINE-A0428417A

PATIENT
  Sex: Female

DRUGS (8)
  1. PAXIL [Suspect]
     Indication: DEPRESSION
     Dosage: 12.5MG PER DAY
     Route: 048
  2. PAXIL [Suspect]
     Route: 048
  3. TEGRETOL [Concomitant]
  4. SYNTHROID [Concomitant]
  5. HORMONE REPLACEMENT THERAPY [Concomitant]
  6. ATIVAN [Concomitant]
  7. ATENOLOL [Concomitant]
  8. KLONOPIN [Concomitant]

REACTIONS (4)
  - ANXIETY [None]
  - DRUG INEFFECTIVE [None]
  - FATIGUE [None]
  - HEADACHE [None]
